FAERS Safety Report 5107883-0 (Version None)
Quarter: 2006Q3

REPORT INFORMATION
  Report Type: 
  Country: None (occurrence: None)
  Receive Date: 20060914
  Receipt Date: 20060911
  Transmission Date: 20061208
  Serious: Yes (Hospitalization)
  Sender: FDA-Public Use
  Company Number: FI-SHR-03-018350

PATIENT

DRUGS (1)
  1. MAGNEVIST [Suspect]

REACTIONS (1)
  - ANURIA [None]
